FAERS Safety Report 8400748-8 (Version None)
Quarter: 2012Q2

REPORT INFORMATION
  Report Type: 
  Country: None (occurrence: None)
  Receive Date: 20120531
  Receipt Date: 20120524
  Transmission Date: 20120825
  Serious: Yes (Death, Hospitalization, Other)
  Sender: FDA-Public Use
  Company Number: US-MERCK-1111USA02469

PATIENT
  Age: 66 Year
  Sex: Female
  Weight: 56 kg

DRUGS (3)
  1. FOSAMAX [Suspect]
     Indication: OSTEOPOROSIS
     Route: 048
     Dates: start: 20030101, end: 20070101
  2. FOSAMAX [Suspect]
     Indication: OSTEOPENIA
     Route: 048
     Dates: start: 20030101, end: 20070101
  3. ACTIVELLA [Concomitant]
     Indication: HORMONE REPLACEMENT THERAPY
     Route: 065

REACTIONS (18)
  - DENTAL CARIES [None]
  - DEATH [None]
  - HYPERCHOLESTEROLAEMIA [None]
  - LOOSE TOOTH [None]
  - PATHOLOGICAL FRACTURE [None]
  - OSTEORADIONECROSIS [None]
  - VOMITING [None]
  - NAUSEA [None]
  - OSTEONECROSIS OF JAW [None]
  - HYPOTHYROIDISM [None]
  - OSTEOMYELITIS [None]
  - SINUS DISORDER [None]
  - FUNGAL INFECTION [None]
  - HYPERTENSION [None]
  - DYSPHAGIA [None]
  - POSTMENOPAUSAL HAEMORRHAGE [None]
  - IMPAIRED HEALING [None]
  - INCREASED TENDENCY TO BRUISE [None]
